FAERS Safety Report 9290517 (Version 1)
Quarter: 2012Q4

REPORT INFORMATION
  Report Type: Spontaneous
  Country: IT (occurrence: None)
  Receive Date: 20121002
  Receipt Date: 20121002
  Transmission Date: 20130627
  Serious: Yes (Hospitalization)
  Sender: FDA-Public Use
  Company Number: FK201202841

PATIENT
  Age: 67 Year
  Sex: Female

DRUGS (9)
  1. GEMCITABINE [Suspect]
     Indication: MALIGNANT HEPATOBILIARY NEOPLASM
     Route: 042
     Dates: start: 20111223, end: 20120313
  2. ZESTRIL (LISINOPRIL) [Concomitant]
  3. ZOFRAN (ONDANSETRON) [Concomitant]
  4. TACHIDOL (PANADEINE CO) [Concomitant]
  5. LERCADIP (LERCANIDIPINE) [Concomitant]
  6. MYELOSTIM (LENOGRASTIM) [Concomitant]
  7. VANDETANIB (VANDETANIB) [Concomitant]
  8. METFORMINA (METFORMIN) [Concomitant]
  9. OMEPRAZOLE (OMEPRAZOLE) [Concomitant]

REACTIONS (5)
  - Ectropion [None]
  - Erythema [None]
  - Skin exfoliation [None]
  - Eczema [None]
  - Purulence [None]
